FAERS Safety Report 23958777 (Version 1)
Quarter: 2024Q2

REPORT INFORMATION
  Report Type: Spontaneous
  Country: US (occurrence: US)
  Receive Date: 20240610
  Receipt Date: 20240610
  Transmission Date: 20240716
  Serious: No
  Sender: FDA-Public Use
  Company Number: US-AMGEN-USASP2024113447

PATIENT
  Age: 53 Year
  Sex: Male

DRUGS (2)
  1. BLINCYTO [Suspect]
     Active Substance: BLINATUMOMAB
     Indication: Acute lymphocytic leukaemia
     Dosage: UNK, DOSE WILL BE 28 DAYS LONG EVER 4TH MONTH FOR TWO YEARS
     Route: 065
     Dates: start: 202308
  2. BLINCYTO [Suspect]
     Active Substance: BLINATUMOMAB
     Dosage: UNK, DOSE WILL BE 28 DAYS LONG EVER 4TH MONTH FOR TWO YEARS
     Route: 065
     Dates: start: 20240507, end: 20240604

REACTIONS (1)
  - Myalgia [Unknown]
